FAERS Safety Report 7898677-1 (Version None)
Quarter: 2011Q4

REPORT INFORMATION
  Report Type: 
  Country: None (occurrence: None)
  Receive Date: 20111107
  Receipt Date: 20111029
  Transmission Date: 20120403
  Serious: Yes (Life-Threatening, Other)
  Sender: FDA-Public Use
  Company Number: US-PFIZER INC-2011270405

PATIENT
  Age: 48 Year
  Sex: Female

DRUGS (2)
  1. PROPRANOLOL HCL [Suspect]
  2. CLONIDINE [Suspect]

REACTIONS (5)
  - HEART RATE DECREASED [None]
  - BLOOD PRESSURE SYSTOLIC DECREASED [None]
  - METABOLIC ACIDOSIS [None]
  - MULTIPLE DRUG OVERDOSE [None]
  - COMA SCALE ABNORMAL [None]
